FAERS Safety Report 13970619 (Version 1)
Quarter: 2017Q3

REPORT INFORMATION
  Report Type: Spontaneous
  Country: US (occurrence: US)
  Receive Date: 20170914
  Receipt Date: 20170914
  Transmission Date: 20171128
  Serious: No
  Sender: FDA-Public Use
  Company Number: US-INTERPRAG-PM-OCA2017-00665

PATIENT

DRUGS (9)
  1. IRON [Concomitant]
     Active Substance: IRON
     Dosage: 27 MG, UNK
     Route: 065
     Dates: start: 20170622
  2. VITAMIN D                          /00107901/ [Concomitant]
     Active Substance: ERGOCALCIFEROL
     Dosage: 50000 U, UNK
     Route: 065
     Dates: start: 20170622
  3. SIMVASTATIN. [Concomitant]
     Active Substance: SIMVASTATIN
     Dosage: 5 MG, UNK
     Route: 065
     Dates: start: 20170622
  4. URSODIOL. [Concomitant]
     Active Substance: URSODIOL
     Dosage: 300 GM, UNK
     Route: 065
     Dates: start: 20170622
  5. CARAFATE [Concomitant]
     Active Substance: SUCRALFATE
     Dosage: 1 GM, UNK
     Dates: start: 20170622
  6. METFORMIN [Concomitant]
     Active Substance: METFORMIN HYDROCHLORIDE
     Dosage: 500 MG, UNK
     Route: 065
     Dates: start: 20170622
  7. PANTOPRAZOLE [Concomitant]
     Active Substance: PANTOPRAZOLE
     Dosage: 20 MG, UNK
     Route: 065
     Dates: start: 20170622
  8. OCALIVA [Suspect]
     Active Substance: OBETICHOLIC ACID
     Indication: BILIARY CIRRHOSIS PRIMARY
     Dosage: 5 MG, QD
     Route: 048
     Dates: start: 201706
  9. XALATAN [Concomitant]
     Active Substance: LATANOPROST
     Dosage: SOL 0.005%
     Route: 065
     Dates: start: 20170622

REACTIONS (1)
  - Fatigue [Unknown]

NARRATIVE: CASE EVENT DATE: 201706
